FAERS Safety Report 7122817-5 (Version None)
Quarter: 2010Q4

REPORT INFORMATION
  Report Type: 
  Country: None (occurrence: None)
  Receive Date: 20101124
  Receipt Date: 20101119
  Transmission Date: 20110411
  Serious: Yes (Other)
  Sender: FDA-Public Use
  Company Number: US-ABBOTT-10P-163-0684160-00

PATIENT
  Sex: Female

DRUGS (10)
  1. BIAXIN [Suspect]
     Indication: HELICOBACTER INFECTION
     Dates: start: 20080627, end: 20080706
  2. BETASERON [Suspect]
     Indication: RELAPSING-REMITTING MULTIPLE SCLEROSIS
     Dosage: 8 MIU, EVERY OTHER DAY
     Route: 058
     Dates: end: 20090904
  3. BETASERON [Suspect]
     Route: 058
     Dates: start: 20100524, end: 20100623
  4. BETASERON [Suspect]
     Dosage: 8 MIU, EVERY OTHER DAY
     Route: 058
     Dates: start: 20100724
  5. CORTICOSTEROIDS [Suspect]
     Indication: MULTIPLE SCLEROSIS RELAPSE
     Route: 042
  6. PENICILLIN [Suspect]
     Indication: HELICOBACTER INFECTION
     Dates: start: 20080627, end: 20080706
  7. PERCOCET [Concomitant]
     Indication: PAIN
  8. LISINOPRIL [Concomitant]
     Indication: HYPERTENSION
  9. ULTRAM [Concomitant]
     Indication: PRODUCT USED FOR UNKNOWN INDICATION
  10. THYROID MEDICATION [Concomitant]
     Indication: HYPOTHYROIDISM

REACTIONS (12)
  - ABDOMINAL PAIN UPPER [None]
  - CHEMICAL INJURY [None]
  - FATIGUE [None]
  - INJECTION SITE PAIN [None]
  - INJECTION SITE REACTION [None]
  - LOCAL SWELLING [None]
  - LYMPHADENOPATHY [None]
  - MUSCULAR WEAKNESS [None]
  - NEUTRALISING ANTIBODIES POSITIVE [None]
  - PAIN OF SKIN [None]
  - SCAB [None]
  - URTICARIA [None]
